FAERS Safety Report 5488431-2 (Version None)
Quarter: 2007Q4

REPORT INFORMATION
  Report Type: 
  Country: None (occurrence: None)
  Receive Date: 20071017
  Receipt Date: 20071009
  Transmission Date: 20080405
  Serious: Yes (Other)
  Sender: FDA-Public Use
  Company Number: US-AVENTIS-200717144US

PATIENT
  Sex: Female

DRUGS (9)
  1. LANTUS [Suspect]
     Indication: BLOOD GLUCOSE INCREASED
     Route: 051
     Dates: start: 20070101
  2. LANTUS [Suspect]
     Route: 051
     Dates: start: 20070101
  3. PLAVIX [Concomitant]
     Dosage: DOSE: UNK
  4. SYNTHROID [Concomitant]
     Dosage: DOSE: UNK
  5. ZESTRA [Concomitant]
     Indication: BLOOD PRESSURE
     Dosage: DOSE: UNK
  6. PREMARIN [Concomitant]
     Indication: HORMONE REPLACEMENT THERAPY
     Dosage: DOSE: UNK
  7. FLONASE [Concomitant]
     Indication: ASTHMA
     Dosage: DOSE: UNK
  8. ALBUTEROL [Concomitant]
     Indication: ASTHMA
     Dosage: DOSE: UNK
  9. ACTOS [Concomitant]
     Dosage: DOSE: UNK

REACTIONS (5)
  - ANAEMIA [None]
  - DISCOMFORT [None]
  - DYSPNOEA [None]
  - GENERALISED OEDEMA [None]
  - RENAL FAILURE CHRONIC [None]
